FAERS Safety Report 18419835 (Version 1)
Quarter: 2020Q4

REPORT INFORMATION
  Report Type: Spontaneous
  Country: FR (occurrence: FR)
  Receive Date: 20201023
  Receipt Date: 20201023
  Transmission Date: 20210114
  Serious: Yes (Other)
  Sender: FDA-Public Use
  Company Number: FR-PFIZER INC-2020408071

PATIENT
  Age: 61 Year
  Sex: Male

DRUGS (2)
  1. CELEBREX [Suspect]
     Active Substance: CELECOXIB
     Indication: PAIN
     Dosage: 2 DF, 1X/DAY
     Route: 048
     Dates: start: 2004, end: 20200909
  2. COSENTYX [Suspect]
     Active Substance: SECUKINUMAB
     Indication: PSORIATIC ARTHROPATHY
     Dosage: 300 MG, WEEKLY
     Route: 058
     Dates: start: 20190927, end: 201911

REACTIONS (4)
  - Headache [Recovered/Resolved]
  - Brain injury [Not Recovered/Not Resolved]
  - Hypoaesthesia [Recovered/Resolved]
  - Language disorder [Recovered/Resolved]

NARRATIVE: CASE EVENT DATE: 20191031
